FAERS Safety Report 9059498 (Version 6)
Quarter: 2013Q2

REPORT INFORMATION
  Report Type: Report from Study
  Country: ZA (occurrence: ZA)
  Receive Date: 20130211
  Receipt Date: 20130517
  Transmission Date: 20140414
  Serious: Yes (Other)
  Sender: FDA-Public Use
  Company Number: ZA-ABBOTT-13P-143-1048001-00

PATIENT
  Age: 5 Year
  Sex: Female

DRUGS (2)
  1. RITONAVIR ORAL SOLUTION [Suspect]
     Indication: HIV INFECTION
     Route: 048
     Dates: start: 20111208, end: 20130206
  2. ATAZANAVIR [Concomitant]
     Indication: HIV INFECTION
     Route: 048
     Dates: start: 20121208, end: 20130206

REACTIONS (1)
  - Alanine aminotransferase increased [Recovered/Resolved]
